FAERS Safety Report 16462977 (Version 1)
Quarter: 2019Q2

REPORT INFORMATION
  Report Type: Spontaneous
  Country: NL (occurrence: FR)
  Receive Date: 20190621
  Receipt Date: 20190621
  Transmission Date: 20190711
  Serious: Yes (Hospitalization)
  Sender: FDA-Public Use
  Company Number: FR-FRESENIUS KABI-FK201906599

PATIENT
  Age: 72 Year
  Sex: Male
  Weight: 92 kg

DRUGS (4)
  1. LANSOPRAZOLE. [Suspect]
     Active Substance: LANSOPRAZOLE
     Indication: PRODUCT USED FOR UNKNOWN INDICATION
     Route: 048
     Dates: start: 201903, end: 20190507
  2. CARBOPLATIN. [Concomitant]
     Active Substance: CARBOPLATIN
     Indication: BRONCHIAL CARCINOMA
     Route: 042
     Dates: start: 20190416, end: 20190416
  3. SULFAMETHOXAZOLE/TRIMETHOPRIM [Suspect]
     Active Substance: SULFAMETHOXAZOLE\TRIMETHOPRIM
     Indication: LUNG DISORDER
     Route: 048
     Dates: start: 20190327, end: 20190507
  4. PACLITAXEL (MANUFACTURER UNKNOWN) [Suspect]
     Active Substance: PACLITAXEL
     Indication: BRONCHIAL CARCINOMA
     Route: 042
     Dates: start: 2019

REACTIONS (1)
  - Cholestasis [Recovered/Resolved]

NARRATIVE: CASE EVENT DATE: 20190507
